FAERS Safety Report 6517456-0 (Version None)
Quarter: 2009Q4

REPORT INFORMATION
  Report Type: 
  Country: None (occurrence: None)
  Receive Date: 20091224
  Receipt Date: 20091217
  Transmission Date: 20100525
  Serious: Yes (Hospitalization)
  Sender: FDA-Public Use
  Company Number: US-BIOGENIDEC-2009BI041702

PATIENT
  Age: 52 Year
  Sex: Female

DRUGS (2)
  1. AVONEX [Suspect]
     Indication: MULTIPLE SCLEROSIS
     Route: 030
     Dates: start: 20010518
  2. AVONEX [Suspect]
     Route: 030
     Dates: start: 20010518

REACTIONS (9)
  - ANAEMIA [None]
  - DYSGEUSIA [None]
  - FATIGUE [None]
  - INFLUENZA [None]
  - PULMONARY THROMBOSIS [None]
  - RENAL FAILURE ACUTE [None]
  - SPEECH DISORDER [None]
  - URINARY TRACT INFECTION [None]
  - WEIGHT DECREASED [None]
